FAERS Safety Report 12867000 (Version 1)
Quarter: 2016Q4

REPORT INFORMATION
  Report Type: Spontaneous
  Country: US (occurrence: US)
  Receive Date: 20161020
  Receipt Date: 20161020
  Transmission Date: 20170207
  Serious: No
  Sender: FDA-Public Use
  Company Number: US-JAZZ-2016-US-014776

PATIENT
  Sex: Female

DRUGS (23)
  1. BIOTIN [Concomitant]
     Active Substance: BIOTIN
  2. BLINK [Concomitant]
  3. NEURONTIN [Concomitant]
     Active Substance: GABAPENTIN
  4. LOSARTAN. [Concomitant]
     Active Substance: LOSARTAN
  5. POTASSIUM CL [Concomitant]
     Active Substance: POTASSIUM CHLORIDE
  6. RETIN-A [Concomitant]
     Active Substance: TRETINOIN
  7. XYREM [Suspect]
     Active Substance: SODIUM OXYBATE
     Dosage: 2.25 G, BID
     Route: 048
     Dates: start: 201411
  8. ASPIRIN. [Concomitant]
     Active Substance: ASPIRIN
  9. LIPITOR [Concomitant]
     Active Substance: ATORVASTATIN CALCIUM
  10. SYNTHROID [Concomitant]
     Active Substance: LEVOTHYROXINE SODIUM
  11. RITALIN [Concomitant]
     Active Substance: METHYLPHENIDATE HYDROCHLORIDE
  12. VENTOLIN HFA [Concomitant]
     Active Substance: ALBUTEROL SULFATE
  13. CALCIUM + VIT D [Concomitant]
     Active Substance: CALCIUM\VITAMIN D
  14. MAXZIDE [Concomitant]
     Active Substance: HYDROCHLOROTHIAZIDE\TRIAMTERENE
  15. XYREM [Suspect]
     Active Substance: SODIUM OXYBATE
     Indication: NARCOLEPSY
     Dosage: 1.5 G, BID
     Route: 048
     Dates: start: 201209, end: 2012
  16. XYREM [Suspect]
     Active Substance: SODIUM OXYBATE
     Indication: CATAPLEXY
     Dosage: 1.5 G, BID
     Route: 048
     Dates: start: 201310, end: 201411
  17. TYLENOL ARTHRITIS PAIN [Concomitant]
     Active Substance: ACETAMINOPHEN
  18. IBUPROFEN. [Concomitant]
     Active Substance: IBUPROFEN
  19. FISH OIL [Concomitant]
     Active Substance: FISH OIL
  20. NITROSTAT [Concomitant]
     Active Substance: NITROGLYCERIN
  21. MULTIPLE VITAMINS [Concomitant]
     Active Substance: VITAMINS
  22. OMEPRAZOLE. [Concomitant]
     Active Substance: OMEPRAZOLE
  23. PROZAC [Concomitant]
     Active Substance: FLUOXETINE HYDROCHLORIDE

REACTIONS (1)
  - Intentional product use issue [Unknown]
